FAERS Safety Report 15328020 (Version 4)
Quarter: 2022Q4

REPORT INFORMATION
  Report Type: Report from Study
  Country: KR (occurrence: KR)
  Receive Date: 20180828
  Receipt Date: 20221128
  Transmission Date: 20230113
  Serious: Yes (Hospitalization)
  Sender: FDA-Public Use
  Company Number: KR-AMGEN-KORNI2018117529

PATIENT
  Age: 55 Year
  Sex: Male
  Weight: 72.8 kg

DRUGS (22)
  1. CARFILZOMIB [Suspect]
     Active Substance: CARFILZOMIB
     Indication: Plasma cell myeloma
     Dosage: 20 MILLIGRAM/SQ. METER
     Route: 042
     Dates: start: 20180427
  2. CARFILZOMIB [Suspect]
     Active Substance: CARFILZOMIB
     Dosage: 56 MILLIGRAM/SQ. METER
     Route: 042
  3. SULFAMETHOXAZOLE\TRIMETHOPRIM [Concomitant]
     Active Substance: SULFAMETHOXAZOLE\TRIMETHOPRIM
     Dosage: 1 UNK
     Dates: start: 20180427, end: 20180913
  4. NALOXONE HYDROCHLORIDE\OXYCODONE HYDROCHLORIDE [Concomitant]
     Active Substance: NALOXONE HYDROCHLORIDE\OXYCODONE HYDROCHLORIDE
     Dosage: 1 UNK
     Dates: start: 20151107
  5. Vacrax [Concomitant]
     Dosage: 400 MILLIGRAM
     Dates: start: 20180427
  6. LYRICA [Concomitant]
     Active Substance: PREGABALIN
     Dosage: 150 MILLIGRAM
     Dates: start: 20151208, end: 20180730
  7. LANTUS [Concomitant]
     Active Substance: INSULIN GLARGINE
     Dosage: 8 UNK
     Dates: start: 20180601
  8. URUSA [Concomitant]
     Active Substance: URSODIOL
     Dosage: 100 MILLIGRAM
     Dates: start: 20180712, end: 20180718
  9. VITAMIN D3 B.O.N. [Concomitant]
     Dosage: 5 MILLIGRAM
     Dates: start: 20180716, end: 20180716
  10. ZOLEDRONIC ACID [Concomitant]
     Active Substance: ZOLEDRONIC ACID
     Dosage: 5 MILLIGRAM
     Dates: start: 20180716, end: 20180716
  11. Cicor [Concomitant]
     Dosage: 1 GRAM
     Dates: start: 20160325
  12. CALCIUM CARBONATE [Concomitant]
     Active Substance: CALCIUM CARBONATE
     Dosage: 500 MILLIGRAM
     Dates: start: 20180803, end: 20180809
  13. EVOGLIPTIN TARTRATE [Concomitant]
     Active Substance: EVOGLIPTIN TARTRATE
     Dosage: 1 UNK
     Dates: start: 20180731
  14. RENAMEZIN [Concomitant]
     Dosage: 1 UNK
     Dates: start: 20180731
  15. TASNA [Concomitant]
     Dosage: 1000 MILLIGRAM
     Dates: start: 20180804, end: 20180809
  16. NEXIUM [Concomitant]
     Active Substance: ESOMEPRAZOLE MAGNESIUM
     Dosage: 20 MILLIGRAM
     Dates: start: 20180727
  17. Cavid [Concomitant]
     Dosage: 1 UNK
     Dates: start: 20180727
  18. EZETIMIBE\ROSUVASTATIN [Concomitant]
     Active Substance: EZETIMIBE\ROSUVASTATIN
     Dosage: 1 UNK
     Dates: start: 20170807
  19. FEROBA YOU [Concomitant]
     Dosage: 1 UNK
     Dates: start: 20170904
  20. FOLIC ACID [Concomitant]
     Active Substance: FOLIC ACID
     Dosage: 1 MILLIGRAM
     Dates: start: 20170904
  21. Fexorin [Concomitant]
     Dosage: 40 MILLIGRAM
     Dates: start: 20180206, end: 20180814
  22. DEXAMETHASONE [Concomitant]
     Active Substance: DEXAMETHASONE
     Dosage: 20 MILLIGRAM
     Dates: start: 20180712, end: 20180824

REACTIONS (1)
  - Hypophagia [Recovered/Resolved]

NARRATIVE: CASE EVENT DATE: 20180811
